FAERS Safety Report 19445656 (Version 12)
Quarter: 2024Q1

REPORT INFORMATION
  Report Type: Spontaneous
  Country: CA (occurrence: CA)
  Receive Date: 20210622
  Receipt Date: 20240318
  Transmission Date: 20240410
  Serious: Yes (Other)
  Sender: FDA-Public Use
  Company Number: CA-002147023-NVSC2021CA132769

PATIENT

DRUGS (68)
  1. SUMATRIPTAN SUCCINATE [Suspect]
     Active Substance: SUMATRIPTAN SUCCINATE
     Indication: Migraine
     Dosage: 100 MG
     Route: 065
  2. SUMATRIPTAN SUCCINATE [Suspect]
     Active Substance: SUMATRIPTAN SUCCINATE
     Indication: Pain
     Dosage: 100 MG, QD
     Route: 065
  3. WELLBUTRIN [Suspect]
     Active Substance: BUPROPION HYDROCHLORIDE
     Indication: Depression
     Dosage: 150 MG
     Route: 065
  4. WELLBUTRIN [Suspect]
     Active Substance: BUPROPION HYDROCHLORIDE
     Dosage: 100 MG
     Route: 065
  5. WELLBUTRIN [Suspect]
     Active Substance: BUPROPION HYDROCHLORIDE
     Dosage: 100 MG
     Route: 005
  6. WELLBUTRIN [Suspect]
     Active Substance: BUPROPION HYDROCHLORIDE
     Dosage: 150 MG
     Route: 005
  7. BUPROPION HYDROCHLORIDE [Suspect]
     Active Substance: BUPROPION HYDROCHLORIDE
     Indication: Product used for unknown indication
     Dosage: 150 MG
     Route: 065
  8. VENLAFAXINE HYDROCHLORIDE [Suspect]
     Active Substance: VENLAFAXINE HYDROCHLORIDE
     Indication: Product used for unknown indication
     Dosage: 3.5 MG
     Route: 065
  9. VENLAFAXINE HYDROCHLORIDE [Suspect]
     Active Substance: VENLAFAXINE HYDROCHLORIDE
     Dosage: UNK
     Route: 065
  10. VENLAFAXINE HYDROCHLORIDE [Suspect]
     Active Substance: VENLAFAXINE HYDROCHLORIDE
     Dosage: 37.5 MG
     Route: 016
  11. DEXAMETHASONE [Suspect]
     Active Substance: DEXAMETHASONE
     Indication: Migraine
     Dosage: 4 MG
     Route: 065
  12. DEXAMETHASONE [Suspect]
     Active Substance: DEXAMETHASONE
     Dosage: 4 MG(LIQUID INTRA- ARTICULAR)
     Route: 016
  13. DICLOFENAC SODIUM [Suspect]
     Active Substance: DICLOFENAC\DICLOFENAC SODIUM
     Indication: Migraine
     Dosage: UNK
     Route: 065
  14. DICLOFENAC SODIUM [Suspect]
     Active Substance: DICLOFENAC\DICLOFENAC SODIUM
     Dosage: 75 MG
     Route: 065
  15. CITALOPRAM HYDROBROMIDE [Suspect]
     Active Substance: CITALOPRAM HYDROBROMIDE
     Indication: Depression
     Dosage: 20 MG (THERAPY DURATION: 61.0 DAYS)
     Route: 016
  16. CITALOPRAM HYDROBROMIDE [Suspect]
     Active Substance: CITALOPRAM HYDROBROMIDE
     Dosage: UNK
     Route: 065
  17. CODEINE [Suspect]
     Active Substance: CODEINE
     Indication: Migraine
     Dosage: 100 MG
     Route: 065
  18. FLUOXETINE [Suspect]
     Active Substance: FLUOXETINE HYDROCHLORIDE
     Indication: Migraine
     Dosage: UNK,THERAPY DURATION: 5 YEARS
     Route: 016
  19. FLUOXETINE [Suspect]
     Active Substance: FLUOXETINE HYDROCHLORIDE
     Dosage: 10 MG
     Route: 065
  20. FLUOXETINE [Suspect]
     Active Substance: FLUOXETINE HYDROCHLORIDE
     Dosage: 30 MG
     Route: 065
  21. FLUOXETINE [Suspect]
     Active Substance: FLUOXETINE HYDROCHLORIDE
     Dosage: UNK
     Route: 016
  22. FLUOXETINE [Suspect]
     Active Substance: FLUOXETINE HYDROCHLORIDE
     Dosage: 30 MG
     Route: 065
  23. FLUOXETINE [Suspect]
     Active Substance: FLUOXETINE HYDROCHLORIDE
     Dosage: 10 MG
     Route: 065
  24. FLUOXETINE [Suspect]
     Active Substance: FLUOXETINE HYDROCHLORIDE
     Dosage: 10 MG
     Route: 065
  25. MORPHINE SULFATE [Suspect]
     Active Substance: MORPHINE SULFATE
     Indication: Migraine
     Dosage: 5 MG
     Route: 065
  26. VORTIOXETINE HYDROBROMIDE [Suspect]
     Active Substance: VORTIOXETINE HYDROBROMIDE
     Indication: Depression
     Dosage: UNK
     Route: 065
  27. AIMOVIG [Suspect]
     Active Substance: ERENUMAB-AOOE
     Indication: Migraine
     Dosage: UNK
     Route: 005
  28. DICLOFENAC SODIUM [Suspect]
     Active Substance: DICLOFENAC\DICLOFENAC SODIUM
     Indication: Migraine
     Dosage: UNK
     Route: 065
  29. VENLAFAXINE HYDROCHLORIDE [Suspect]
     Active Substance: VENLAFAXINE HYDROCHLORIDE
     Indication: Product used for unknown indication
     Dosage: UNK
     Route: 065
  30. BUPROPION HYDROBROMIDE [Suspect]
     Active Substance: BUPROPION HYDROBROMIDE
     Indication: Product used for unknown indication
     Dosage: 150 MG
     Route: 065
  31. ACETAMINOPHEN [Concomitant]
     Active Substance: ACETAMINOPHEN
     Indication: Product used for unknown indication
     Dosage: 30 MG
     Route: 065
  32. ELAVIL [Concomitant]
     Active Substance: AMITRIPTYLINE HYDROCHLORIDE
     Indication: Product used for unknown indication
     Dosage: 25 MG
     Route: 065
  33. IMOVANE [Concomitant]
     Active Substance: ZOPICLONE
     Indication: Product used for unknown indication
     Dosage: UNK
     Route: 065
  34. LYRICA [Concomitant]
     Active Substance: PREGABALIN
     Indication: Product used for unknown indication
     Dosage: 75 MG
     Route: 065
  35. NORFLEX [Concomitant]
     Active Substance: ORPHENADRINE CITRATE
     Indication: Product used for unknown indication
     Dosage: 100 MG
     Route: 065
  36. TYLENOL [Concomitant]
     Active Substance: ACETAMINOPHEN
     Indication: Product used for unknown indication
     Dosage: 30 MG
     Route: 065
  37. CIPRALEX [Concomitant]
     Active Substance: ESCITALOPRAM OXALATE
     Indication: Product used for unknown indication
     Dosage: UNK
     Route: 065
  38. CYMBALTA [Concomitant]
     Active Substance: DULOXETINE HYDROCHLORIDE
     Indication: Product used for unknown indication
     Dosage: UNK
     Route: 016
  39. ABILIFY [Concomitant]
     Active Substance: ARIPIPRAZOLE
     Indication: Product used for unknown indication
     Dosage: 5 MG (THERAPY DURATION: 122.0 DAYS)
     Route: 016
  40. BOTOX [Concomitant]
     Active Substance: ONABOTULINUMTOXINA
     Indication: Product used for unknown indication
     Dosage: 100 IU
     Route: 030
  41. BOTOX [Concomitant]
     Active Substance: ONABOTULINUMTOXINA
     Dosage: 200 IU
     Route: 042
  42. TOPAMAX [Concomitant]
     Active Substance: TOPIRAMATE
     Indication: Product used for unknown indication
     Dosage: 25 MG
     Route: 065
  43. ZOPICLONE [Concomitant]
     Active Substance: ZOPICLONE
     Indication: Product used for unknown indication
     Dosage: 7.5 MG
     Route: 065
  44. ZOPICLONE [Concomitant]
     Active Substance: ZOPICLONE
     Dosage: 7.5 MG
     Route: 065
  45. ZOPICLONE [Concomitant]
     Active Substance: ZOPICLONE
     Dosage: 7.5 MG
     Route: 065
  46. ZOPICLONE [Concomitant]
     Active Substance: ZOPICLONE
     Dosage: 7.5 MG, QD
     Route: 065
  47. ALLOPURINOL [Concomitant]
     Active Substance: ALLOPURINOL
     Indication: Product used for unknown indication
     Dosage: 25 MG
     Route: 065
  48. LAMOTRIGINE [Concomitant]
     Active Substance: LAMOTRIGINE
     Indication: Product used for unknown indication
     Dosage: UNK,THERAPY DURATION 153.0 DAYS
     Route: 065
  49. LAMOTRIGINE [Concomitant]
     Active Substance: LAMOTRIGINE
     Dosage: UNK
     Route: 065
  50. LITHIUM [Concomitant]
     Active Substance: LITHIUM
     Indication: Product used for unknown indication
     Dosage: 150 MG,(THERAPY DURATION: 153.0 DAYS)
     Route: 065
  51. PAROXETINE HYDROCHLORIDE [Concomitant]
     Active Substance: PAROXETINE HYDROCHLORIDE\PAROXETINE HYDROCHLORIDE ANHYDROUS
     Indication: Product used for unknown indication
     Dosage: UNK
     Route: 065
  52. BETAMETHASONE [Concomitant]
     Active Substance: BETAMETHASONE\BETAMETHASONE DIPROPIONATE
     Indication: Product used for unknown indication
     Dosage: UNK
     Route: 065
  53. BOTULINUM TOXIN TYPE A [Concomitant]
     Active Substance: BOTULINUM TOXIN TYPE A
     Indication: Product used for unknown indication
     Dosage: 100 IU
     Route: 042
  54. BOTULINUM TOXIN TYPE A [Concomitant]
     Active Substance: BOTULINUM TOXIN TYPE A
     Dosage: 200 IU
     Route: 042
  55. BACLOFEN [Concomitant]
     Active Substance: BACLOFEN
     Indication: Product used for unknown indication
     Dosage: 10 MG
     Route: 065
  56. BACLOFEN [Concomitant]
     Active Substance: BACLOFEN
     Dosage: 10 MG
     Route: 065
  57. NAPROXEN [Concomitant]
     Active Substance: NAPROXEN
     Indication: Product used for unknown indication
     Dosage: 375 MG
     Route: 065
  58. NAPROXEN [Concomitant]
     Active Substance: NAPROXEN
     Dosage: 100 MG
     Route: 016
  59. PREDNISONE [Concomitant]
     Active Substance: PREDNISONE
     Indication: Product used for unknown indication
     Dosage: 50 MG
     Route: 065
  60. TEMAZEPAM [Concomitant]
     Active Substance: TEMAZEPAM
     Indication: Product used for unknown indication
     Dosage: 15 MG (THERAPY DURATION: 4 YEARS)
     Route: 016
  61. TOPIRAMATE [Concomitant]
     Active Substance: TOPIRAMATE
     Indication: Product used for unknown indication
     Dosage: 25 MG, BID
     Route: 065
  62. TRAZODONE [Concomitant]
     Active Substance: TRAZODONE HYDROCHLORIDE
     Indication: Product used for unknown indication
     Dosage: 50 MG
     Route: 065
  63. CLONAZEPAM [Concomitant]
     Active Substance: CLONAZEPAM
     Indication: Product used for unknown indication
     Dosage: UNK,THERAPY DURATION: 61.0 DAYS
     Route: 016
  64. CYCLOBENZAPRINE [Concomitant]
     Active Substance: CYCLOBENZAPRINE
     Indication: Product used for unknown indication
     Dosage: UNK
     Route: 065
  65. BETAMETHASONE DIPROPIONATE [Concomitant]
     Active Substance: BETAMETHASONE DIPROPIONATE
     Indication: Product used for unknown indication
     Dosage: UNK
     Route: 065
  66. GABAPENTIN [Concomitant]
     Active Substance: GABAPENTIN
     Indication: Product used for unknown indication
     Dosage: UNK
     Route: 065
  67. VENLAFAXINE HYDROCHLORIDE [Concomitant]
     Active Substance: VENLAFAXINE HYDROCHLORIDE
     Indication: Product used for unknown indication
     Dosage: 37.5 MG
     Route: 065
  68. ESCITALOPRAM OXALATE [Concomitant]
     Active Substance: ESCITALOPRAM OXALATE
     Indication: Product used for unknown indication
     Dosage: UNK
     Route: 065

REACTIONS (39)
  - Anxiety [Unknown]
  - Body temperature increased [Unknown]
  - Concussion [Unknown]
  - Contusion [Unknown]
  - Diarrhoea [Unknown]
  - Dizziness [Unknown]
  - Drug ineffective [Unknown]
  - Dysgeusia [Unknown]
  - Dyspepsia [Unknown]
  - Feeling hot [Unknown]
  - Flushing [Unknown]
  - Gastrooesophageal reflux disease [Unknown]
  - Headache [Unknown]
  - Hostility [Unknown]
  - Hyperhidrosis [Unknown]
  - Hypoaesthesia [Unknown]
  - Irritability [Unknown]
  - Libido increased [Unknown]
  - Memory impairment [Unknown]
  - Middle insomnia [Unknown]
  - Migraine [Unknown]
  - Muscle twitching [Unknown]
  - Nausea [Unknown]
  - Nightmare [Unknown]
  - Personality disorder [Unknown]
  - Poor quality sleep [Unknown]
  - Post-traumatic neck syndrome [Unknown]
  - Rib fracture [Unknown]
  - Sedation [Unknown]
  - Soft tissue injury [Unknown]
  - Somnolence [Unknown]
  - Sternal fracture [Unknown]
  - Tremor [Unknown]
  - Vertigo [Unknown]
  - Weight decreased [Unknown]
  - Weight increased [Unknown]
  - Incorrect route of product administration [Unknown]
  - Off label use [Unknown]
  - Product use in unapproved indication [Unknown]
